FAERS Safety Report 5032865-7 (Version None)
Quarter: 2006Q2

REPORT INFORMATION
  Report Type: 
  Country: None (occurrence: None)
  Receive Date: 20060622
  Receipt Date: 20060610
  Transmission Date: 20061013
  Serious: Yes (Hospitalization)
  Sender: FDA-Public Use
  Company Number: ES-GLAXOSMITHKLINE-B0427639A

PATIENT
  Age: 72 Year
  Sex: Male

DRUGS (4)
  1. AVODART [Suspect]
     Indication: BENIGN PROSTATIC HYPERPLASIA
     Route: 048
  2. RENITEC [Concomitant]
     Indication: HYPERTENSION
     Dosage: 20MG IN THE MORNING
     Route: 048
  3. CARDYL [Concomitant]
     Indication: HYPERCHOLESTEROLAEMIA
     Dosage: 20MG AT NIGHT
     Route: 048
  4. RYTHMOL [Concomitant]
     Dosage: 150MG IN THE MORNING
     Route: 048

REACTIONS (6)
  - ABDOMINAL PAIN [None]
  - DIARRHOEA [None]
  - FLUSHING [None]
  - HEADACHE [None]
  - NAUSEA [None]
  - PANCREATITIS ACUTE [None]
